FAERS Safety Report 4893695-X (Version None)
Quarter: 2005Q4

REPORT INFORMATION
  Report Type: 
  Country: None (occurrence: None)
  Receive Date: 20051223
  Receipt Date: 20051107
  Transmission Date: 20060501
  Serious: No
  Sender: FDA-Public Use
  Company Number: 2005PV004062

PATIENT
  Age: 59 Year
  Sex: Female

DRUGS (3)
  1. SYMLIN [Suspect]
     Indication: DIABETES MELLITUS NON-INSULIN-DEPENDENT
     Dosage: 15 MCG;TID;SC
     Route: 058
     Dates: start: 20051103
  2. LANTUS [Concomitant]
  3. NOVOLOG [Concomitant]

REACTIONS (3)
  - ABDOMINAL PAIN [None]
  - ANOREXIA [None]
  - CONSTIPATION [None]
